FAERS Safety Report 5383146-3 (Version None)
Quarter: 2007Q3

REPORT INFORMATION
  Report Type: 
  Country: None (occurrence: None)
  Receive Date: 20070710
  Receipt Date: 20070702
  Transmission Date: 20080115
  Serious: No
  Sender: FDA-Public Use
  Company Number: US-ELI_LILLY_AND_COMPANY-US200705005804

PATIENT
  Age: 70 Year
  Sex: Male
  Weight: 74.829 kg

DRUGS (3)
  1. BYETTA [Suspect]
     Dosage: 10 UNK, UNKNOWN
     Dates: start: 20061101
  2. DIOVAN /01319601/ [Concomitant]
     Indication: BLOOD PRESSURE
     Dosage: UNK, UNKNOWN
  3. VITAMIN CAP [Concomitant]
     Dosage: UNK, UNKNOWN

REACTIONS (4)
  - DIARRHOEA [None]
  - FLATULENCE [None]
  - GASTROINTESTINAL DISORDER [None]
  - WEIGHT DECREASED [None]
